FAERS Safety Report 5251186-0 (Version None)
Quarter: 2007Q1

REPORT INFORMATION
  Report Type: 
  Country: None (occurrence: None)
  Receive Date: 20070228
  Receipt Date: 20060912
  Transmission Date: 20070707
  Serious: Yes (Hospitalization)
  Sender: FDA-Public Use
  Company Number: US-GLAXOSMITHKLINE-A0619924A

PATIENT
  Age: 32 Year
  Sex: Female

DRUGS (8)
  1. LAMICTAL [Suspect]
     Dosage: 100MG TWICE PER DAY
     Route: 048
     Dates: start: 20060701
  2. BUPROPION HYDROCHLORIDE [Suspect]
     Indication: DEPRESSION
     Route: 048
     Dates: start: 20060301, end: 20060301
  3. KLONOPIN [Concomitant]
  4. SCOPOLAMINE [Concomitant]
     Route: 062
  5. ALLEGRA [Concomitant]
  6. AMBIEN [Concomitant]
  7. COMPAZINE [Concomitant]
  8. NAPROXEN [Concomitant]

REACTIONS (4)
  - CONVULSION [None]
  - DIZZINESS [None]
  - FATIGUE [None]
  - PAIN [None]
